FAERS Safety Report 5236385-6 (Version None)
Quarter: 2007Q1

REPORT INFORMATION
  Report Type: 
  Country: None (occurrence: None)
  Receive Date: 20070212
  Receipt Date: 20070131
  Transmission Date: 20070707
  Serious: Yes (Hospitalization, Other)
  Sender: FDA-Public Use
  Company Number: SE-PFIZER INC-2007009126

PATIENT
  Sex: Female
  Weight: 75.5 kg

DRUGS (3)
  1. GENOTROPIN [Suspect]
     Indication: HYPOPITUITARISM
     Dosage: DAILY DOSE:.1MG
     Dates: start: 20060529, end: 20060924
  2. LEVOTHYROXINE SODIUM [Concomitant]
     Dates: start: 19990302
  3. HYDROCORTONE [Concomitant]

REACTIONS (2)
  - NUCLEAR MAGNETIC RESONANCE IMAGING BRAIN ABNORMAL [None]
  - PITUITARY TUMOUR BENIGN [None]
